FAERS Safety Report 17008358 (Version 21)
Quarter: 2022Q4

REPORT INFORMATION
  Report Type: Report from Study
  Country: US (occurrence: US)
  Receive Date: 20191108
  Receipt Date: 20221216
  Transmission Date: 20230113
  Serious: Yes (Other)
  Sender: FDA-Public Use
  Company Number: US-SHIRE-US201937990

PATIENT
  Sex: Female
  Weight: 60 kg

DRUGS (29)
  1. .ALPHA.1-PROTEINASE INHIBITOR HUMAN [Suspect]
     Active Substance: .ALPHA.1-PROTEINASE INHIBITOR HUMAN
     Indication: Alpha-1 antitrypsin deficiency
     Dosage: 60 MILLIGRAM/KILOGRAM, 1X/WEEK
     Route: 042
     Dates: start: 20171016
  2. .ALPHA.1-PROTEINASE INHIBITOR HUMAN [Suspect]
     Active Substance: .ALPHA.1-PROTEINASE INHIBITOR HUMAN
     Indication: Alpha-1 antitrypsin deficiency
     Dosage: 60 MILLIGRAM/KILOGRAM, 1X/WEEK
     Route: 042
     Dates: start: 20171016
  3. .ALPHA.1-PROTEINASE INHIBITOR HUMAN [Suspect]
     Active Substance: .ALPHA.1-PROTEINASE INHIBITOR HUMAN
     Indication: Chronic obstructive pulmonary disease
     Dosage: 60 MILLIGRAM/KILOGRAM, 1/WEEK
     Route: 042
     Dates: start: 20171018
  4. .ALPHA.1-PROTEINASE INHIBITOR HUMAN [Suspect]
     Active Substance: .ALPHA.1-PROTEINASE INHIBITOR HUMAN
     Indication: Chronic obstructive pulmonary disease
     Dosage: 60 MILLIGRAM/KILOGRAM, 1/WEEK
     Route: 042
     Dates: start: 20171018
  5. .ALPHA.1-PROTEINASE INHIBITOR HUMAN [Suspect]
     Active Substance: .ALPHA.1-PROTEINASE INHIBITOR HUMAN
     Dosage: 60 MILLIGRAM/KILOGRAM, 1/WEEK
     Route: 042
     Dates: start: 20171018
  6. .ALPHA.1-PROTEINASE INHIBITOR HUMAN [Suspect]
     Active Substance: .ALPHA.1-PROTEINASE INHIBITOR HUMAN
     Dosage: 60 MILLIGRAM/KILOGRAM, 1/WEEK
     Route: 042
     Dates: start: 20171018
  7. DIPHENHYDRAMINE [Concomitant]
     Active Substance: DIPHENHYDRAMINE
     Dosage: UNK
     Route: 065
  8. HEPARIN [Concomitant]
     Active Substance: HEPARIN SODIUM
     Dosage: UNK
     Route: 065
  9. LIDOCAINE [Concomitant]
     Active Substance: LIDOCAINE
  10. SODIUM CHLORIDE [Concomitant]
     Active Substance: SODIUM CHLORIDE
     Dosage: UNK
     Route: 065
  11. EPINEPHRINE [Concomitant]
     Active Substance: EPINEPHRINE
     Dosage: UNK
     Route: 065
  12. MAXITROL [Concomitant]
     Active Substance: DEXAMETHASONE\NEOMYCIN SULFATE\POLYMYXIN B SULFATE
  13. LISINOPRIL [Concomitant]
     Active Substance: LISINOPRIL
  14. LUBIPROSTONE [Concomitant]
     Active Substance: LUBIPROSTONE
  15. OMEPRAZOLE [Concomitant]
     Active Substance: OMEPRAZOLE
  16. OXYGEN [Concomitant]
     Active Substance: OXYGEN
     Dosage: UNK
     Route: 065
  17. ESCITALOPRAM [Concomitant]
     Active Substance: ESCITALOPRAM OXALATE
  18. ATORVASTATIN [Concomitant]
     Active Substance: ATORVASTATIN
  19. ESCITALOPRAM OXALATE [Concomitant]
     Active Substance: ESCITALOPRAM OXALATE
     Indication: Product used for unknown indication
     Dosage: UNK
     Route: 065
  20. ATORVASTATIN CALCIUM [Concomitant]
     Active Substance: ATORVASTATIN CALCIUM
     Dosage: UNK
     Route: 065
  21. FLUCELVAX QUADRIVALENT 2017/2018 (INFLUENZA A VIRUS A/DARWIN/11/2021 ( [Concomitant]
     Active Substance: INFLUENZA A VIRUS A/DARWIN/11/2021 (H3N2) ANTIGEN (MDCK CELL DERIVED, PROPIOLACTONE INACTIVATED)\INF
     Dosage: UNK
     Route: 065
  22. FLUARIX NOS [Concomitant]
     Active Substance: INFLUENZA VIRUS VACCINE
     Dosage: UNK
     Route: 065
  23. ASPIRIN [Concomitant]
     Active Substance: ASPIRIN
     Dosage: UNK
     Route: 065
  24. FOLIC ACID [Concomitant]
     Active Substance: FOLIC ACID
     Dosage: UNK
     Route: 065
  25. IBUPROFEN [Concomitant]
     Active Substance: IBUPROFEN
     Dosage: UNK
     Route: 065
  26. NORTRIPTYLINE [Concomitant]
     Active Substance: NORTRIPTYLINE
     Dosage: UNK
     Route: 065
  27. CALCIUM [Concomitant]
     Active Substance: CALCIUM
  28. ACETAMINOPHEN [Concomitant]
     Active Substance: ACETAMINOPHEN
  29. HYDROCODONE [Concomitant]
     Active Substance: HYDROCODONE

REACTIONS (27)
  - Syncope [Recovered/Resolved]
  - Kidney infection [Unknown]
  - Dyspnoea exertional [Unknown]
  - Musculoskeletal stiffness [Unknown]
  - Chest discomfort [Unknown]
  - Condition aggravated [Unknown]
  - Visual impairment [Unknown]
  - Road traffic accident [Unknown]
  - Urinary tract infection [Unknown]
  - Tenderness [Unknown]
  - Respiratory tract infection [Unknown]
  - Post procedural infection [Unknown]
  - Central venous catheter removal [Unknown]
  - Central venous catheterisation [Unknown]
  - Catheter site pain [Unknown]
  - Eye disorder [Recovering/Resolving]
  - Nausea [Unknown]
  - Arthralgia [Unknown]
  - Anxiety [Unknown]
  - Fatigue [Recovering/Resolving]
  - Pain [Unknown]
  - Back pain [Unknown]
  - Dizziness [Recovered/Resolved]
  - COVID-19 [Unknown]
  - Poor venous access [Unknown]
  - Device issue [Unknown]
  - Product dose omission issue [Unknown]
